FAERS Safety Report 7659038-3 (Version None)
Quarter: 2011Q3

REPORT INFORMATION
  Report Type: 
  Country: None (occurrence: None)
  Receive Date: 20110805
  Receipt Date: 20110801
  Transmission Date: 20111222
  Serious: Yes (Death)
  Sender: FDA-Public Use
  Company Number: CHPA2011FR09705

PATIENT
  Age: 3 Year
  Sex: Male

DRUGS (1)
  1. SCOPOLAMINE [Suspect]
     Indication: BRONCHIAL OBSTRUCTION
     Dosage: 1 DF, Q72H
     Route: 065
     Dates: start: 20110718

REACTIONS (4)
  - CONCOMITANT DISEASE AGGRAVATED [None]
  - OFF LABEL USE [None]
  - NEOPLASM MALIGNANT [None]
  - OVERDOSE [None]
